FAERS Safety Report 15854536 (Version 1)
Quarter: 2019Q1

REPORT INFORMATION
  Report Type: Spontaneous
  Country: US (occurrence: US)
  Receive Date: 20190122
  Receipt Date: 20190122
  Transmission Date: 20190417
  Serious: Yes (Other)
  Sender: FDA-Public Use
  Company Number: US-BAUSCH-BL-2019-001758

PATIENT
  Age: 62 Year
  Sex: Female

DRUGS (1)
  1. XIFAXAN [Suspect]
     Active Substance: RIFAXIMIN
     Indication: HEPATIC ENCEPHALOPATHY
     Dosage: ONE-HALF THE USUAL DOSE
     Route: 048

REACTIONS (6)
  - Dysstasia [Not Recovered/Not Resolved]
  - Loss of consciousness [Recovered/Resolved]
  - Intentional product use issue [Unknown]
  - Inability to afford medication [Unknown]
  - Dysarthria [Not Recovered/Not Resolved]
  - Wrong technique in product usage process [Unknown]

NARRATIVE: CASE EVENT DATE: 20190116
